FAERS Safety Report 24589310 (Version 2)
Quarter: 2024Q4

REPORT INFORMATION
  Report Type: Report from Study
  Country: US (occurrence: US)
  Receive Date: 20241107
  Receipt Date: 20241127
  Transmission Date: 20250114
  Serious: Yes (Other)
  Sender: ABBVIE
  Company Number: US-ABBVIE-5987669

PATIENT
  Age: 70 Year
  Sex: Male
  Weight: 95 kg

DRUGS (11)
  1. HUMIRA [Suspect]
     Active Substance: ADALIMUMAB
     Indication: Ankylosing spondylitis
     Dosage: FORM STRENGTH: 40 MG
     Route: 058
     Dates: start: 20220307, end: 20241009
  2. METHOTREXATE [Concomitant]
     Active Substance: METHOTREXATE
     Indication: Ankylosing spondylitis
     Dosage: FORM STRENGTH: 2.5 MG
  3. PREDNISONE [Suspect]
     Active Substance: PREDNISONE
     Indication: Giant cell arteritis
     Dosage: DOSE DECREASED?FIRST ADMIN DATE 2024
     Route: 065
  4. PREDNISONE [Suspect]
     Active Substance: PREDNISONE
     Indication: Giant cell arteritis
     Dosage: LAST ADMIN DATE 2024.
     Route: 065
     Dates: start: 202410
  5. LEUCOVORIN [Concomitant]
     Active Substance: LEUCOVORIN\LEUCOVORIN CALCIUM
     Indication: Product used for unknown indication
  6. COVID-19 vaccine [Concomitant]
     Indication: COVID-19 immunisation
  7. INFLUENZA VIRUS VACCINE [Concomitant]
     Active Substance: INFLUENZA VIRUS VACCINE
     Indication: Influenza immunisation
  8. TAMSULOSIN [Concomitant]
     Active Substance: TAMSULOSIN
     Indication: Prostatomegaly
  9. FOLIC ACID [Concomitant]
     Active Substance: FOLIC ACID
     Indication: Vitamin supplementation
  10. VITAMIN D3 [Concomitant]
     Active Substance: CHOLECALCIFEROL
     Indication: Vitamin supplementation
  11. VITAMIN B12 [Concomitant]
     Active Substance: CYANOCOBALAMIN
     Indication: Vitamin supplementation

REACTIONS (8)
  - Giant cell arteritis [Recovering/Resolving]
  - Sleep disorder [Not Recovered/Not Resolved]
  - Vein disorder [Unknown]
  - Haemoglobin increased [Unknown]
  - Inflammatory marker increased [Unknown]
  - Vasodilatation [Recovering/Resolving]
  - Haemoglobin abnormal [Not Recovered/Not Resolved]
  - Head discomfort [Unknown]

NARRATIVE: CASE EVENT DATE: 20240101
